FAERS Safety Report 17270410 (Version 1)
Quarter: 2020Q1

REPORT INFORMATION
  Report Type: Spontaneous
  Country: US (occurrence: US)
  Receive Date: 20200114
  Receipt Date: 20200114
  Transmission Date: 20200409
  Serious: Yes (Hospitalization, Other)
  Sender: FDA-Public Use
  Company Number: US-MYLANLABS-2020M1003988

PATIENT
  Age: 69 Year
  Sex: Female

DRUGS (1)
  1. FONDAPARINUX SODIUM INJECTION, USP [Suspect]
     Active Substance: FONDAPARINUX SODIUM
     Indication: THROMBOSIS PROPHYLAXIS
     Dosage: 7.5 MILLIGRAM, QD
     Route: 058

REACTIONS (6)
  - Injection site pain [Recovered/Resolved]
  - Needle issue [Unknown]
  - Injection site warmth [Recovering/Resolving]
  - Fungal infection [Not Recovered/Not Resolved]
  - Injection site erythema [Recovering/Resolving]
  - Injection site rash [Recovering/Resolving]

NARRATIVE: CASE EVENT DATE: 20200105
